FAERS Safety Report 10581157 (Version 1)
Quarter: 2014Q4

REPORT INFORMATION
  Report Type: Spontaneous
  Country: None (occurrence: US)
  Receive Date: 20141113
  Receipt Date: 20141113
  Transmission Date: 20150529
  Serious: Yes (Other)
  Sender: FDA-Public Use
  Company Number: US-CIPLA LTD.-2014US01737

PATIENT

DRUGS (9)
  1. OXALIPLATIN. [Suspect]
     Active Substance: OXALIPLATIN
     Indication: PANCREATIC CARCINOMA
  2. 5-FLUOROURACIL [Suspect]
     Active Substance: FLUOROURACIL
     Indication: PANCREATIC CARCINOMA
  3. DEXAMETHASONE. [Concomitant]
     Active Substance: DEXAMETHASONE
     Indication: SUPPORTIVE CARE
     Dosage: 12 MG, ORALLY
  4. PEGFILGRASTIM [Concomitant]
     Active Substance: PEGFILGRASTIM
     Indication: SUPPORTIVE CARE
     Dosage: 6 MG, DAY 4 (24 H AFTER CESSATION OF 5-FLUOROURACIL PUMP)
  5. GEMCITABINE [Suspect]
     Active Substance: GEMCITABINE\GEMCITABINE HYDROCHLORIDE
     Indication: PANCREATIC CARCINOMA
  6. IRINOTECAN [Suspect]
     Active Substance: IRINOTECAN
     Indication: PANCREATIC CARCINOMA
  7. FOSAPREPITANT [Concomitant]
     Active Substance: FOSAPREPITANT
     Indication: SUPPORTIVE CARE
     Dosage: 150 MG, 30 MIN BEFORE CHEMOTHERAPY
  8. RADIATION [Suspect]
     Active Substance: RADIATION THERAPY
     Indication: PANCREATIC CARCINOMA
  9. PALONOSETRON [Concomitant]
     Active Substance: PALONOSETRON
     Indication: SUPPORTIVE CARE
     Dosage: 0.25 MG, IV PUSH DURING 3 MINS

REACTIONS (1)
  - Disease recurrence [Unknown]
